FAERS Safety Report 4519477-6 (Version None)
Quarter: 2004Q4

REPORT INFORMATION
  Report Type: 
  Country: None (occurrence: None)
  Receive Date: 20041202
  Receipt Date: 20041122
  Transmission Date: 20050328
  Serious: Yes (Hospitalization)
  Sender: FDA-Public Use
  Company Number: 2004CG02340

PATIENT
  Age: 62 Year
  Sex: Male
  Weight: 52 kg

DRUGS (2)
  1. NEXIUM [Suspect]
     Indication: OESOPHAGITIS
     Dosage: 40 MG DAILY PO
     Route: 048
     Dates: start: 20040101, end: 20040823
  2. AUGMENTIN '125' [Suspect]
     Indication: BRONCHOPNEUMOPATHY
     Dosage: 1 G TID PO
     Route: 048
     Dates: start: 20040816, end: 20040823

REACTIONS (3)
  - BONE MARROW MYELOGRAM ABNORMAL [None]
  - BRONCHOPNEUMOPATHY [None]
  - FEBRILE NEUTROPENIA [None]
